FAERS Safety Report 8775032 (Version 3)
Quarter: 2012Q4

REPORT INFORMATION
  Report Type: Report from Study
  Country: DE (occurrence: DE)
  Receive Date: 20120910
  Receipt Date: 20121026
  Transmission Date: 20130627
  Serious: Yes (Other)
  Sender: FDA-Public Use
  Company Number: DE-009507513-1209DEU000001

PATIENT
  Age: 51 Year
  Sex: Male
  Weight: 107 kg

DRUGS (4)
  1. SYCREST [Suspect]
     Indication: BIPOLAR I DISORDER
     Dosage: 10 mg, UNK
     Route: 048
     Dates: start: 20120228, end: 20120417
  2. SEROQUEL [Concomitant]
     Indication: BIPOLAR I DISORDER
     Dosage: 25 mg, UNK
     Dates: start: 20100118
  3. ORFIRIL [Concomitant]
     Indication: BIPOLAR I DISORDER
     Dosage: 1300 mg, qd
     Dates: start: 20101108
  4. SIOFOR [Concomitant]
     Indication: DIABETES MELLITUS
     Dosage: 1000 mg, qd
     Route: 048
     Dates: start: 20100615

REACTIONS (1)
  - Diabetes mellitus inadequate control [Recovered/Resolved]
